FAERS Safety Report 6783134-6 (Version None)
Quarter: 2010Q2

REPORT INFORMATION
  Report Type: 
  Country: None (occurrence: None)
  Receive Date: 20100622
  Receipt Date: 20100611
  Transmission Date: 20101027
  Serious: No
  Sender: FDA-Public Use
  Company Number: US-JNJFOC-20100506178

PATIENT
  Sex: Male
  Weight: 99.79 kg

DRUGS (9)
  1. SANDOZ FENTANYL TRANSDERMAL SYSTEM [Suspect]
     Indication: PAIN
     Route: 062
  2. SANDOZ FENTANYL TRANSDERMAL SYSTEM [Suspect]
     Dosage: NDC:0781-7113-55
     Route: 062
  3. SANDOZ FENTANYL TRANSDERMAL SYSTEM [Suspect]
     Dosage: NDC:0781-7113-55
     Route: 062
  4. SANDOZ FENTANYL TRANSDERMAL SYSTEM [Suspect]
     Indication: BACK PAIN
     Dosage: NDC:0781-7113-55
     Route: 062
  5. SANDOZ FENTANYL TRANSDERMAL SYSTEM [Suspect]
     Route: 062
  6. SANDOZ FENTANYL TRANSDERMAL SYSTEM [Suspect]
     Dosage: NDC:0781-7113-55
     Route: 062
  7. SANDOZ FENTANYL TRANSDERMAL SYSTEM [Suspect]
     Route: 062
  8. NORVASC [Concomitant]
     Indication: HYPERTENSION
     Route: 048
  9. HYZAAR [Concomitant]
     Indication: HYPERTENSION
     Dosage: 100-25 MG
     Route: 048

REACTIONS (3)
  - INADEQUATE ANALGESIA [None]
  - INAPPROPRIATE SCHEDULE OF DRUG ADMINISTRATION [None]
  - PRODUCT ADHESION ISSUE [None]
